FAERS Safety Report 4869030-X (Version None)
Quarter: 2005Q4

REPORT INFORMATION
  Report Type: 
  Country: None (occurrence: None)
  Receive Date: 20051223
  Receipt Date: 20051221
  Transmission Date: 20060501
  Serious: Yes (Hospitalization)
  Sender: FDA-Public Use
  Company Number: 2005-04915

PATIENT
  Age: 37 Year
  Sex: Female

DRUGS (1)
  1. TRELSTAR DEPOT [Suspect]
     Indication: INFERTILITY FEMALE
     Dosage: 3 MG, Q 28 DAYS, INTRAMUSCULAR
     Route: 030
     Dates: start: 20050215, end: 20050415

REACTIONS (9)
  - DRUG ADMINISTRATION ERROR [None]
  - HEADACHE [None]
  - HYPOAESTHESIA [None]
  - MIGRAINE [None]
  - NAUSEA [None]
  - PHOTOPHOBIA [None]
  - TRANSIENT ISCHAEMIC ATTACK [None]
  - VISION BLURRED [None]
  - VISUAL DISTURBANCE [None]
